FAERS Safety Report 6358867-6 (Version None)
Quarter: 2009Q3

REPORT INFORMATION
  Report Type: 
  Country: None (occurrence: None)
  Receive Date: 20090916
  Receipt Date: 20090827
  Transmission Date: 20100115
  Serious: No
  Sender: FDA-Public Use
  Company Number: US-ABBOTT-09P-163-0594786-00

PATIENT
  Sex: Female
  Weight: 47.216 kg

DRUGS (4)
  1. TRILIPIX [Suspect]
     Indication: BLOOD TRIGLYCERIDES INCREASED
     Route: 048
     Dates: start: 20090601, end: 20090801
  2. TRILIPIX [Suspect]
     Indication: BLOOD CHOLESTEROL INCREASED
  3. MULTI-VITAMIN [Concomitant]
     Indication: DRUG USE FOR UNKNOWN INDICATION
  4. TYLENOL (CAPLET) [Concomitant]
     Indication: HEADACHE

REACTIONS (6)
  - ASTHENIA [None]
  - BACK PAIN [None]
  - BONE PAIN [None]
  - INCORRECT DRUG ADMINISTRATION DURATION [None]
  - MYALGIA [None]
  - SYNCOPE [None]
